FAERS Safety Report 6306200-8 (Version None)
Quarter: 2009Q3

REPORT INFORMATION
  Report Type: 
  Country: None (occurrence: None)
  Receive Date: 20090810
  Receipt Date: 20090724
  Transmission Date: 20100115
  Serious: Yes (Death)
  Sender: FDA-Public Use
  Company Number: 2008AL012586

PATIENT
  Sex: Female

DRUGS (1)
  1. DIGOXIN [Suspect]
     Dosage: PO
     Route: 048
     Dates: start: 20070101

REACTIONS (7)
  - ECONOMIC PROBLEM [None]
  - EMOTIONAL DISORDER [None]
  - FAMILY STRESS [None]
  - INJURY [None]
  - PAIN [None]
  - RESPIRATORY FAILURE [None]
  - SOCIAL PROBLEM [None]
